FAERS Safety Report 6178864-3 (Version None)
Quarter: 2009Q2

REPORT INFORMATION
  Report Type: 
  Country: None (occurrence: None)
  Receive Date: 20090505
  Receipt Date: 20090423
  Transmission Date: 20091009
  Serious: Yes (Life-Threatening, Other)
  Sender: FDA-Public Use
  Company Number: CA-BAXTER-2009BH003220

PATIENT
  Age: 35 Year
  Sex: Male

DRUGS (9)
  1. LACTATED RINGER'S [Suspect]
     Indication: SURGERY
     Route: 065
     Dates: start: 20090101
  2. LACTATED RINGER'S [Suspect]
     Route: 065
     Dates: start: 20090101
  3. LACTATED RINGER'S [Suspect]
     Route: 065
     Dates: start: 20090101
  4. HEPARIN [Suspect]
     Indication: DRUG USE FOR UNKNOWN INDICATION
     Route: 065
     Dates: start: 20090101
  5. MIDAZOLAM HCL [Suspect]
     Indication: DRUG USE FOR UNKNOWN INDICATION
     Route: 042
     Dates: start: 20090205
  6. PROPOFOL [Suspect]
     Indication: DRUG USE FOR UNKNOWN INDICATION
     Route: 065
  7. SUFENTANIL [Concomitant]
     Indication: DRUG USE FOR UNKNOWN INDICATION
     Route: 065
  8. ZEMURON [Concomitant]
     Indication: DRUG USE FOR UNKNOWN INDICATION
     Route: 065
  9. SODIUM CHLORIDE [Concomitant]
     Indication: DRUG USE FOR UNKNOWN INDICATION
     Route: 065

REACTIONS (2)
  - POST PROCEDURAL HAEMORRHAGE [None]
  - PRODUCT CONTAMINATION [None]
